FAERS Safety Report 7691085-8 (Version None)
Quarter: 2011Q3

REPORT INFORMATION
  Report Type: 
  Country: None (occurrence: None)
  Receive Date: 20110818
  Receipt Date: 20110811
  Transmission Date: 20111222
  Serious: Yes (Other)
  Sender: FDA-Public Use
  Company Number: JP-ROCHE-796179

PATIENT
  Sex: Female

DRUGS (6)
  1. CAPECITABINE [Suspect]
     Route: 048
     Dates: start: 20090222, end: 20090307
  2. CAPECITABINE [Suspect]
     Indication: COLON CANCER
     Dosage: NOTE: IT IS ONE ADMINISTERING WEEKLY HOLIDAY MEDICINE FOR TWO WEEKS.
     Route: 048
     Dates: start: 20090201, end: 20090214
  3. CAPECITABINE [Suspect]
     Route: 048
     Dates: start: 20090419, end: 20090502
  4. CAPECITABINE [Suspect]
     Route: 048
     Dates: start: 20090510, end: 20090523
  5. CAPECITABINE [Suspect]
     Route: 048
     Dates: start: 20090322, end: 20090404
  6. POSTERISAN [Concomitant]
     Route: 061
     Dates: start: 20090312, end: 20090514

REACTIONS (4)
  - PYREXIA [None]
  - PALMAR-PLANTAR ERYTHRODYSAESTHESIA SYNDROME [None]
  - SARCOIDOSIS [None]
  - UPPER RESPIRATORY TRACT INFLAMMATION [None]
